FAERS Safety Report 9012947 (Version 6)
Quarter: 2013Q3

REPORT INFORMATION
  Report Type: Spontaneous
  Country: US (occurrence: US)
  Receive Date: 20130114
  Receipt Date: 20130910
  Transmission Date: 20140515
  Serious: Yes (Hospitalization, Other)
  Sender: FDA-Public Use
  Company Number: US-GLAXOSMITHKLINE-A1008229A

PATIENT
  Age: 57 Year
  Sex: Male
  Weight: 92.7 kg

DRUGS (1)
  1. AVANDIA [Suspect]
     Indication: DIABETES MELLITUS
     Dosage: 4MG TWICE PER DAY
     Route: 048
     Dates: start: 19991108, end: 20110119

REACTIONS (15)
  - Sick sinus syndrome [Not Recovered/Not Resolved]
  - Coronary artery occlusion [Unknown]
  - Atrial flutter [Unknown]
  - Coronary artery disease [Unknown]
  - Catheterisation cardiac [Unknown]
  - Stent placement [Unknown]
  - Arrhythmia [Unknown]
  - Chest pain [Unknown]
  - Coronary angioplasty [Unknown]
  - Angiogram [Unknown]
  - Dyspnoea [Unknown]
  - Hyperlipidaemia [Unknown]
  - Hypertension [Unknown]
  - Atrial fibrillation [Unknown]
  - Coronary artery disease [Unknown]
